FAERS Safety Report 5580473-1 (Version None)
Quarter: 2008Q1

REPORT INFORMATION
  Report Type: 
  Country: None (occurrence: None)
  Receive Date: 20080103
  Receipt Date: 20071220
  Transmission Date: 20080703
  Serious: Yes (Other)
  Sender: FDA-Public Use
  Company Number: US-BAYER-200714267BCC

PATIENT
  Sex: Female

DRUGS (4)
  1. ALEVE [Suspect]
     Indication: DRUG USE FOR UNKNOWN INDICATION
     Route: 048
  2. ZOCOR [Concomitant]
     Indication: UNEVALUABLE EVENT
     Route: 065
  3. VYTORIN [Concomitant]
     Indication: UNEVALUABLE EVENT
     Route: 065
  4. HYZAAR [Concomitant]

REACTIONS (1)
  - EPISTAXIS [None]
